FAERS Safety Report 9689772 (Version 1)
Quarter: 2013Q4

REPORT INFORMATION
  Report Type: Spontaneous
  Country: CO (occurrence: CO)
  Receive Date: 20131115
  Receipt Date: 20131115
  Transmission Date: 20140711
  Serious: Yes (Other)
  Sender: FDA-Public Use
  Company Number: CO-JNJFOC-20131105392

PATIENT
  Sex: Female

DRUGS (1)
  1. STELARA [Suspect]
     Indication: PSORIASIS
     Route: 042
     Dates: start: 20121019

REACTIONS (4)
  - Pneumonia [Unknown]
  - Headache [Unknown]
  - Eye pruritus [Unknown]
  - Influenza [Unknown]
